FAERS Safety Report 21987635 (Version 1)
Quarter: 2023Q1

REPORT INFORMATION
  Report Type: Spontaneous
  Country: CN (occurrence: None)
  Receive Date: 20230214
  Receipt Date: 20230214
  Transmission Date: 20230417
  Serious: Yes (Other)
  Sender: FDA-Public Use
  Company Number: CN-ROCHE-3281830

PATIENT
  Age: 43 Year
  Sex: Female
  Weight: 46 kg

DRUGS (6)
  1. HERCEPTIN [Suspect]
     Active Substance: TRASTUZUMAB
     Indication: Breast cancer metastatic
     Dosage: 368 MG/276 MG
     Route: 065
     Dates: start: 20191026, end: 20200212
  2. PERJETA [Suspect]
     Active Substance: PERTUZUMAB
     Indication: Breast cancer metastatic
     Dosage: 840 MG/420 MG
     Route: 065
     Dates: start: 20191026, end: 20200212
  3. KADCYLA [Suspect]
     Active Substance: ADO-TRASTUZUMAB EMTANSINE
     Indication: Breast cancer metastatic
     Dosage: TREATMENT DATES: 16/APR/2022, 07/MAY/2022, 28/MAY/2022, 18/JUN/2022, 09/JUL/2022, 30/JUL/2022 AND 20
     Route: 065
  4. DOCETAXEL [Concomitant]
     Active Substance: DOCETAXEL
     Indication: Breast cancer metastatic
     Dates: start: 20191026, end: 20200212
  5. CARBOPLATIN [Concomitant]
     Active Substance: CARBOPLATIN
     Indication: Breast cancer metastatic
     Dates: start: 20191026, end: 20200212
  6. ANASTROZOLE [Concomitant]
     Active Substance: ANASTROZOLE
     Dates: start: 2020

REACTIONS (3)
  - Dizziness [Unknown]
  - Decreased appetite [Unknown]
  - Platelet count decreased [Recovering/Resolving]

NARRATIVE: CASE EVENT DATE: 20220420
